FAERS Safety Report 16481815 (Version 12)
Quarter: 2021Q4

REPORT INFORMATION
  Report Type: Other
  Country: CA (occurrence: None)
  Receive Date: 20190627
  Receipt Date: 20211116
  Transmission Date: 20220303
  Serious: Yes (Hospitalization, Other)
  Sender: FDA-Public Use
  Company Number: CA-ROCHE-2342925

PATIENT
  Age: 59 Year
  Sex: Female

DRUGS (24)
  1. RITUXAN [Suspect]
     Active Substance: RITUXIMAB
     Indication: Polychondritis
     Dosage: FIRST PIR RECEIVED;
     Route: 042
     Dates: start: 20190618
  2. CELLCEPT [Suspect]
     Active Substance: MYCOPHENOLATE MOFETIL\MYCOPHENOLATE MOFETIL HYDROCHLORIDE
     Indication: Hepatic cirrhosis
     Route: 065
  3. AMLODIPINE [Concomitant]
     Active Substance: AMLODIPINE BESYLATE
     Route: 048
  4. ATORVASTATIN [Concomitant]
     Active Substance: ATORVASTATIN
     Dosage: HALF OF A 10 MG CAP
  5. BENADRYL [Concomitant]
     Active Substance: DIPHENHYDRAMINE HYDROCHLORIDE
     Indication: Premedication
     Route: 048
     Dates: start: 20190618
  6. BETAHISTINE [Concomitant]
     Active Substance: BETAHISTINE
     Indication: Vertigo
     Dosage: TWO - THREE CAPS THREE TIMES DAILY AS REQUIRED
  7. FUROSEMIDE [Concomitant]
     Active Substance: FUROSEMIDE
     Indication: Inflammation
     Route: 048
  8. GABAPENTIN [Concomitant]
     Active Substance: GABAPENTIN
     Route: 048
  9. GRAVOL [Concomitant]
     Active Substance: DIMENHYDRINATE
  10. LAMISIL [Concomitant]
     Active Substance: TERBINAFINE HYDROCHLORIDE
     Route: 061
  11. LORAZEPAM [Concomitant]
     Active Substance: LORAZEPAM
  12. POTASSIUM [Concomitant]
     Active Substance: POTASSIUM
     Route: 048
  13. PREDNISONE [Concomitant]
     Active Substance: PREDNISONE
     Route: 048
     Dates: start: 201912
  14. PREDNISONE [Concomitant]
     Active Substance: PREDNISONE
     Route: 048
     Dates: start: 201609
  15. QUETIAPINE [Concomitant]
     Active Substance: QUETIAPINE
     Route: 048
  16. SOLU-MEDROL [Concomitant]
     Active Substance: METHYLPREDNISOLONE SODIUM SUCCINATE
     Indication: Premedication
     Route: 042
     Dates: start: 20190618
  17. SYNTHROID [Concomitant]
     Active Substance: LEVOTHYROXINE SODIUM
     Route: 048
  18. TYLENOL [Concomitant]
     Active Substance: ACETAMINOPHEN
     Indication: Premedication
     Route: 048
     Dates: start: 20190618
  19. AMLODIPINE [Concomitant]
     Active Substance: AMLODIPINE BESYLATE
  20. SULFASALAZINE [Concomitant]
     Active Substance: SULFASALAZINE
  21. GRAVOL [Concomitant]
     Active Substance: DIMENHYDRINATE
  22. DIMENHYDRINATE [Concomitant]
     Active Substance: DIMENHYDRINATE
     Route: 048
  23. FLUTICASONE FUROATE [Concomitant]
     Active Substance: FLUTICASONE FUROATE
     Indication: Hypersensitivity
     Route: 045
  24. AMITRIPTYLINE [Concomitant]
     Active Substance: AMITRIPTYLINE
     Route: 048

REACTIONS (19)
  - Dyspnoea [Unknown]
  - C-reactive protein increased [Unknown]
  - Tracheal obstruction [Unknown]
  - Asthma [Unknown]
  - Oxygen saturation decreased [Unknown]
  - Musculoskeletal chest pain [Unknown]
  - Blood pressure systolic increased [Unknown]
  - Neck injury [Unknown]
  - Oxygen saturation decreased [Unknown]
  - Dyspnoea [Unknown]
  - Blood pressure fluctuation [Unknown]
  - Off label use [Unknown]
  - Infusion related reaction [Recovered/Resolved]
  - Blood pressure diastolic abnormal [Unknown]
  - Arthralgia [Unknown]
  - Infusion related reaction [Recovered/Resolved]
  - Heart rate increased [Unknown]
  - Nausea [Recovered/Resolved]
  - Headache [Recovered/Resolved]

NARRATIVE: CASE EVENT DATE: 20190618
